FAERS Safety Report 7430990-4 (Version None)
Quarter: 2011Q2

REPORT INFORMATION
  Report Type: 
  Country: None (occurrence: None)
  Receive Date: 20110421
  Receipt Date: 20110420
  Transmission Date: 20111010
  Serious: Yes (Death)
  Sender: FDA-Public Use
  Company Number: CN-BAYER-2011-034066

PATIENT
  Sex: Female

DRUGS (1)
  1. ULTRAVIST 150 [Suspect]
     Indication: SALPINGOGRAM
     Dosage: UNK
     Route: 015
     Dates: start: 20110419, end: 20110419

REACTIONS (1)
  - DEATH [None]
